FAERS Safety Report 12208212 (Version 2)
Quarter: 2016Q2

REPORT INFORMATION
  Report Type: Spontaneous
  Country: US (occurrence: US)
  Receive Date: 20160324
  Receipt Date: 20160503
  Transmission Date: 20160815
  Serious: Yes (Other)
  Sender: FDA-Public Use
  Company Number: US-ROXANE LABORATORIES, INC.-2016-RO-00541RO

PATIENT
  Age: 65 Year
  Sex: Female

DRUGS (2)
  1. MONTELUKAST SODIUM. [Suspect]
     Active Substance: MONTELUKAST SODIUM
     Indication: HYPERSENSITIVITY
     Dosage: 20 MG
     Route: 065
  2. MONTELUKAST SODIUM. [Suspect]
     Active Substance: MONTELUKAST SODIUM
     Indication: ASTHMA
     Dosage: 10 MG
     Route: 065

REACTIONS (8)
  - Pulmonary pain [Unknown]
  - Product quality issue [Not Recovered/Not Resolved]
  - Pulmonary oedema [Unknown]
  - Drug ineffective [Unknown]
  - Burning sensation [Not Recovered/Not Resolved]
  - Sneezing [Not Recovered/Not Resolved]
  - Cough [Unknown]
  - Pruritus [Not Recovered/Not Resolved]
